FAERS Safety Report 10460906 (Version 1)
Quarter: 2014Q3

REPORT INFORMATION
  Report Type: Spontaneous
  Country: US (occurrence: None)
  Receive Date: 20140917
  Receipt Date: 20140917
  Transmission Date: 20150326
  Serious: Yes (Disabling, Other)
  Sender: FDA-Public Use
  Company Number: None

PATIENT
  Age: 62 Year
  Sex: Female
  Weight: 95.26 kg

DRUGS (1)
  1. ATENOLOL 50 MG [Suspect]
     Active Substance: ATENOLOL
     Indication: PRODUCT USED FOR UNKNOWN INDICATION
     Dosage: ONE AND HALF YEARS, 1, ONCE DAILY, TAKEN BY MOUTH
     Route: 048

REACTIONS (4)
  - Road traffic accident [None]
  - Memory impairment [None]
  - Dizziness [None]
  - Loss of consciousness [None]

NARRATIVE: CASE EVENT DATE: 20130401
